FAERS Safety Report 9468822 (Version 2)
Quarter: 2013Q3

REPORT INFORMATION
  Report Type: Report from Study
  Country: US (occurrence: US)
  Receive Date: 20130821
  Receipt Date: 20130827
  Transmission Date: 20140515
  Serious: Yes (Hospitalization)
  Sender: FDA-Public Use
  Company Number: US-ABBOTT-13P-163-1135354-00

PATIENT
  Age: 76 Year
  Sex: Female
  Weight: 47.67 kg

DRUGS (2)
  1. HUMIRA [Suspect]
     Indication: RHEUMATOID ARTHRITIS
     Dates: start: 2007
  2. HUMIRA [Suspect]
     Dates: start: 20130805

REACTIONS (10)
  - Fatigue [Recovering/Resolving]
  - Decreased appetite [Recovering/Resolving]
  - Nausea [Recovering/Resolving]
  - Body temperature increased [Recovering/Resolving]
  - Dehydration [Recovering/Resolving]
  - Renal failure [Recovering/Resolving]
  - Bacterial infection [Recovering/Resolving]
  - Feeling abnormal [Unknown]
  - Hypophagia [Unknown]
  - Fluid intake reduced [Unknown]
